FAERS Safety Report 7747041-4 (Version None)
Quarter: 2011Q3

REPORT INFORMATION
  Report Type: 
  Country: None (occurrence: None)
  Receive Date: 20110913
  Receipt Date: 20110908
  Transmission Date: 20111222
  Serious: Yes (Death)
  Sender: FDA-Public Use
  Company Number: PHEH2011US03787

PATIENT
  Sex: Male
  Weight: 56.689 kg

DRUGS (1)
  1. EXJADE [Suspect]
     Indication: MALIGNANT SOFT TISSUE NEOPLASM
     Dosage: 1000 MG, DAILY
     Route: 048
     Dates: start: 20090602

REACTIONS (1)
  - DEATH [None]
